FAERS Safety Report 11604405 (Version 1)
Quarter: 2015Q4

REPORT INFORMATION
  Report Type: Spontaneous
  Country: TW (occurrence: TW)
  Receive Date: 20151007
  Receipt Date: 20151007
  Transmission Date: 20160304
  Serious: Yes (Other)
  Sender: FDA-Public Use
  Company Number: PHHY2015TW120324

PATIENT

DRUGS (1)
  1. EXELON PATCH [Suspect]
     Active Substance: RIVASTIGMINE
     Indication: PRODUCT USED FOR UNKNOWN INDICATION
     Dosage: 09 MG DAILY RIVASTIGMINE BASE, PATCH 5 (CM2) (4.6 MG/24HOURS)
     Route: 062

REACTIONS (2)
  - Herpes zoster [Unknown]
  - Skin disorder [Unknown]
